FAERS Safety Report 11541881 (Version 1)
Quarter: 2015Q3

REPORT INFORMATION
  Report Type: Spontaneous
  Country: US (occurrence: US)
  Receive Date: 20150923
  Receipt Date: 20150923
  Transmission Date: 20151125
  Serious: No
  Sender: FDA-Public Use
  Company Number: US-TARO-2015TAR00559

PATIENT
  Age: 4 Year
  Sex: Male
  Weight: 21.77 kg

DRUGS (1)
  1. LORATADINE SYRUP (LORATADINE ORAL SOLUTION USP) 5MG/5ML [Suspect]
     Active Substance: LORATADINE
     Indication: URTICARIA
     Dosage: 5 ML, 1X/DAY
     Route: 048
     Dates: start: 20150606, end: 20150607

REACTIONS (2)
  - Off label use [Recovered/Resolved]
  - Pyrexia [Not Recovered/Not Resolved]

NARRATIVE: CASE EVENT DATE: 20150606
